FAERS Safety Report 25050259 (Version 2)
Quarter: 2025Q1

REPORT INFORMATION
  Report Type: Spontaneous
  Country: FR (occurrence: FR)
  Receive Date: 20250307
  Receipt Date: 20250318
  Transmission Date: 20250409
  Serious: Yes (Death, Congenital Anomaly)
  Sender: JOHNSON AND JOHNSON
  Company Number: None

PATIENT
  Age: 0 Year
  Sex: Male
  Weight: 0.05 kg

DRUGS (2)
  1. SIMPONI [Suspect]
     Active Substance: GOLIMUMAB
     Indication: Ankylosing spondylitis
     Route: 064
     Dates: start: 20190820
  2. SIMPONI [Suspect]
     Active Substance: GOLIMUMAB
     Indication: Ankylosing spondylitis

REACTIONS (2)
  - Congenital anomaly [Fatal]
  - Maternal exposure timing unspecified [Recovered/Resolved]

NARRATIVE: CASE EVENT DATE: 20191202
